FAERS Safety Report 24075322 (Version 1)
Quarter: 2024Q3

REPORT INFORMATION
  Report Type: Spontaneous
  Country: DE (occurrence: DE)
  Receive Date: 20240710
  Receipt Date: 20240710
  Transmission Date: 20241017
  Serious: Yes (Hospitalization, Other)
  Sender: BRACCO
  Company Number: DE-BRACCO-2024DE04072

PATIENT
  Age: 57 Year
  Sex: Female

DRUGS (1)
  1. PROHANCE [Suspect]
     Active Substance: GADOTERIDOL
     Indication: Magnetic resonance imaging
     Dosage: UNK, SINGLE
     Route: 042

REACTIONS (5)
  - Visual impairment [Recovered/Resolved]
  - Photopsia [Recovered/Resolved]
  - Lung disorder [Recovered/Resolved]
  - Dyspnoea [Recovered/Resolved]
  - Poisoning [Not Recovered/Not Resolved]
